FAERS Safety Report 5983596-8 (Version None)
Quarter: 2008Q4

REPORT INFORMATION
  Report Type: 
  Country: None (occurrence: None)
  Receive Date: 20081208
  Receipt Date: 20071231
  Transmission Date: 20090506
  Serious: No
  Sender: FDA-Public Use
  Company Number: US-AMGEN-KDL256185

PATIENT
  Sex: Female

DRUGS (2)
  1. ENBREL [Suspect]
     Indication: RHEUMATOID ARTHRITIS
     Route: 058
     Dates: start: 20071206
  2. ARAVA [Concomitant]
     Route: 048
     Dates: start: 20070801

REACTIONS (4)
  - ABDOMINAL PAIN [None]
  - ASTHENIA [None]
  - DIARRHOEA [None]
  - INFLUENZA LIKE ILLNESS [None]
